FAERS Safety Report 4902461-8 (Version None)
Quarter: 2006Q1

REPORT INFORMATION
  Report Type: 
  Country: None (occurrence: None)
  Receive Date: 20060207
  Receipt Date: 20051118
  Transmission Date: 20060701
  Serious: Yes (Life-Threatening, Hospitalization)
  Sender: FDA-Public Use
  Company Number: 2005SE06664

PATIENT
  Age: 15939 Day
  Sex: Male

DRUGS (13)
  1. BLOPRESS TABLETS 8 [Suspect]
     Indication: HYPERTENSION
     Route: 048
  2. BLOPRESS TABLETS 8 [Suspect]
     Route: 048
     Dates: start: 20051111, end: 20051111
  3. TOWARAT [Suspect]
     Indication: HYPERTENSION
     Route: 048
  4. TOWARAT [Suspect]
     Route: 048
     Dates: start: 20051111, end: 20051111
  5. CARBADOGEN [Suspect]
     Indication: HYPERTENSION
     Route: 048
  6. CARBADOGEN [Suspect]
     Route: 048
     Dates: start: 20051111, end: 20051111
  7. 2MG CERCINE TABLETS [Concomitant]
     Route: 048
  8. 2MG CERCINE TABLETS [Concomitant]
     Route: 048
     Dates: start: 20051111, end: 20051111
  9. ALINAMIN-F [Concomitant]
     Route: 048
  10. LIPITOR [Concomitant]
     Route: 048
  11. VITAMEDIN CAPSULE [Concomitant]
     Route: 048
  12. DOGMATYL [Concomitant]
     Route: 048
  13. NOCBIN [Concomitant]
     Route: 048

REACTIONS (2)
  - MULTIPLE DRUG OVERDOSE INTENTIONAL [None]
  - SHOCK [None]
